FAERS Safety Report 8017053-4 (Version None)
Quarter: 2012Q1

REPORT INFORMATION
  Report Type: 
  Country: None (occurrence: None)
  Receive Date: 20120102
  Receipt Date: 20111229
  Transmission Date: 20120608
  Serious: Yes (Hospitalization)
  Sender: FDA-Public Use
  Company Number: PHEH2011US012742

PATIENT
  Age: 14 Year
  Sex: Male
  Weight: 14 kg

DRUGS (2)
  1. TOBI [Suspect]
     Dosage: 300 MG, BID 28 DAYS ON 28 DAYS OFF
     Dates: start: 20100115
  2. PULMOZYME [Concomitant]

REACTIONS (1)
  - RESPIRATORY SYNCYTIAL VIRUS INFECTION [None]
